FAERS Safety Report 8992009 (Version 2)
Quarter: 2013Q3

REPORT INFORMATION
  Report Type: Spontaneous
  Country: US (occurrence: US)
  Receive Date: 20121231
  Receipt Date: 20130718
  Transmission Date: 20140515
  Serious: Yes (Life-Threatening, Hospitalization, Other)
  Sender: FDA-Public Use
  Company Number: CHPA2012US025843

PATIENT
  Age: 47 Year
  Sex: Female
  Weight: 43.84 kg

DRUGS (4)
  1. MAALOX ANTACID/ANTIGAS MAX LIQ [Suspect]
     Indication: PEPTIC ULCER
     Dosage: 4 TSP AM/PM
     Route: 048
     Dates: start: 201002, end: 201109
  2. MAALOX UNKNOWN [Suspect]
     Indication: PEPTIC ULCER
     Dosage: UNK, UNK
     Route: 048
     Dates: end: 201109
  3. OMEPRAZOLE [Concomitant]
     Dosage: UNK
     Dates: start: 200902, end: 201109
  4. TRAMADOL [Concomitant]
     Indication: ARTHRITIS
     Dosage: UNK
     Dates: start: 2011

REACTIONS (16)
  - Dyspnoea [Unknown]
  - Haematemesis [Unknown]
  - Gallbladder disorder [Unknown]
  - Metal poisoning [Not Recovered/Not Resolved]
  - Gastrooesophageal reflux disease [Unknown]
  - Weight decreased [Unknown]
  - Amnesia [Unknown]
  - Blindness [Not Recovered/Not Resolved]
  - Dehydration [Unknown]
  - Gastrointestinal disorder [Not Recovered/Not Resolved]
  - Muscular weakness [Not Recovered/Not Resolved]
  - Eating disorder [Unknown]
  - Activities of daily living impaired [Recovered/Resolved]
  - Nail discolouration [Unknown]
  - Incorrect dose administered [Unknown]
  - Incorrect drug administration duration [Unknown]
